FAERS Safety Report 7998625-X (Version None)
Quarter: 2011Q4

REPORT INFORMATION
  Report Type: 
  Country: None (occurrence: None)
  Receive Date: 20111221
  Receipt Date: 20111214
  Transmission Date: 20120403
  Serious: Yes (Other)
  Sender: FDA-Public Use
  Company Number: PHHY2011JP109952

PATIENT
  Age: 54 Year
  Sex: Female
  Weight: 47 kg

DRUGS (4)
  1. WARFARIN SODIUM [Interacting]
     Dosage: 0.5 MG, PER DAY
  2. S-1 [Interacting]
     Dosage: 50 MG, BID
     Dates: start: 20060405
  3. HEPARIN [Concomitant]
     Dosage: 10000 IU, PER DAY
  4. WARFARIN SODIUM [Suspect]
     Dosage: 4 MG, PER DAY

REACTIONS (2)
  - INTERNATIONAL NORMALISED RATIO INCREASED [None]
  - DRUG INTERACTION [None]
